FAERS Safety Report 20176129 (Version 2)
Quarter: 2022Q1

REPORT INFORMATION
  Report Type: Spontaneous
  Country: US (occurrence: US)
  Receive Date: 20211213
  Receipt Date: 20220225
  Transmission Date: 20220423
  Serious: No
  Sender: FDA-Public Use
  Company Number: US-ORGANON-O2112USA000778

PATIENT
  Age: 31 Year
  Sex: Female
  Weight: 55.329 kg

DRUGS (3)
  1. NEXPLANON [Suspect]
     Active Substance: ETONOGESTREL
     Indication: Contraception
     Dosage: 1 IMPLANT OF 68 MG, ONCE
     Route: 059
     Dates: start: 20200922, end: 20210323
  2. NEXPLANON [Suspect]
     Active Substance: ETONOGESTREL
     Indication: Dysmenorrhoea
  3. NEXPLANON [Suspect]
     Active Substance: ETONOGESTREL
     Indication: Endometriosis

REACTIONS (6)
  - Affective disorder [Not Recovered/Not Resolved]
  - Implant site hypoaesthesia [Not Recovered/Not Resolved]
  - Hypoaesthesia [Not Recovered/Not Resolved]
  - Pain in extremity [Unknown]
  - Hypoaesthesia [Not Recovered/Not Resolved]
  - Product use in unapproved indication [Unknown]

NARRATIVE: CASE EVENT DATE: 20200922
